FAERS Safety Report 22190737 (Version 1)
Quarter: 2023Q2

REPORT INFORMATION
  Report Type: Spontaneous
  Country: US (occurrence: US)
  Receive Date: 20230410
  Receipt Date: 20230410
  Transmission Date: 20230722
  Serious: No
  Sender: FDA-Public Use
  Company Number: US-DSJP-DSU-2023-112839

PATIENT
  Age: 41 Year
  Sex: Female

DRUGS (2)
  1. ENHERTU [Suspect]
     Active Substance: FAM-TRASTUZUMAB DERUXTECAN-NXKI
     Indication: Breast cancer
     Dosage: UNK
     Route: 041
     Dates: start: 20220805
  2. ENHERTU [Suspect]
     Active Substance: FAM-TRASTUZUMAB DERUXTECAN-NXKI
     Dosage: 297 MG
     Route: 041
     Dates: start: 20230331, end: 20230331

REACTIONS (2)
  - Product administration error [Unknown]
  - No adverse event [Unknown]

NARRATIVE: CASE EVENT DATE: 20230331
